FAERS Safety Report 19160067 (Version 1)
Quarter: 2021Q2

REPORT INFORMATION
  Report Type: Spontaneous
  Country: BR (occurrence: BR)
  Receive Date: 20210420
  Receipt Date: 20210420
  Transmission Date: 20210717
  Serious: Yes (Hospitalization, Other)
  Sender: FDA-Public Use
  Company Number: BR-ABBVIE-21K-020-3862500-00

PATIENT
  Sex: Male

DRUGS (12)
  1. BART H [Concomitant]
     Indication: HYPERTENSION
     Dosage: 1 TABLET IN THE MORNING
     Route: 048
     Dates: start: 201910
  2. ROSUVASTATIN CALCIUM. [Concomitant]
     Active Substance: ROSUVASTATIN CALCIUM
     Indication: CARDIAC DISORDER
     Dosage: 1 TABLET AFTER DINNER
     Route: 048
     Dates: start: 201910
  3. EMPROL XR [Concomitant]
     Indication: CARDIAC DISORDER
     Dosage: 1 IN THE MORNING AND HALF AT NIGHT
     Route: 048
     Dates: start: 201910
  4. HUMIRA [Suspect]
     Active Substance: ADALIMUMAB
     Indication: ANKYLOSING SPONDYLITIS
     Route: 058
     Dates: end: 20210314
  5. SUSTRATE [Concomitant]
     Active Substance: PROPATYL NITRATE
     Indication: ANGINA PECTORIS
     Dosage: ONE TABLET UNDER THE TONGUE WHEN NEEDED
     Route: 060
     Dates: start: 201912
  6. NEOSALDINA [Concomitant]
     Active Substance: CAFFEINE\ISOMETHEPTENE\METHIMAZOLE
     Indication: HEADACHE
     Dosage: UNSPECIFIED DOSE, 1 TABLET WHEN EXPERIENCES HEADACHE
     Route: 048
  7. ROXFLAN [Concomitant]
     Active Substance: AMLODIPINE BESYLATE
     Indication: PRODUCT USED FOR UNKNOWN INDICATION
     Dosage: 1 TABLET IN THE MORNING
     Route: 048
     Dates: start: 201910
  8. ALTA D [Concomitant]
     Indication: VITAMIN SUPPLEMENTATION
     Route: 048
  9. SUSTRATE [Concomitant]
     Active Substance: PROPATYL NITRATE
     Indication: PARAESTHESIA
  10. NEOVANGY MR [Concomitant]
     Indication: CARDIAC DISORDER
     Dosage: 1 AT NIGHT / 1 IN THE MORNING
     Route: 048
     Dates: start: 201910
  11. CLOPIDOGREL BISULFATE. [Concomitant]
     Active Substance: CLOPIDOGREL BISULFATE
     Indication: CARDIAC DISORDER
     Dosage: 1 TABLET AFTER DINNER
     Route: 048
     Dates: start: 201910
  12. SOMALGIN CARDIO [Concomitant]
     Active Substance: ASPIRIN\DIHYDROXYALUMINUM AMINOACETATE ANHYDROUS\MAGNESIUM CARBONATE
     Indication: ANTICOAGULANT THERAPY
     Dosage: 1 TABLET AFTER LUNCH
     Route: 048
     Dates: start: 201910

REACTIONS (16)
  - Diverticulitis [Recovering/Resolving]
  - Hypertension [Unknown]
  - Malaise [Unknown]
  - Cardiac disorder [Recovering/Resolving]
  - Chest pain [Recovering/Resolving]
  - Rheumatic disorder [Unknown]
  - Immunodeficiency [Unknown]
  - Foot fracture [Unknown]
  - Stent placement [Unknown]
  - Inflammation [Unknown]
  - Dizziness [Recovering/Resolving]
  - Osteoporosis [Unknown]
  - Paraesthesia [Recovering/Resolving]
  - Pain [Unknown]
  - Headache [Unknown]
  - Fall [Unknown]

NARRATIVE: CASE EVENT DATE: 2015
